FAERS Safety Report 14355003 (Version 1)
Quarter: 2018Q1

REPORT INFORMATION
  Report Type: Spontaneous
  Country: FR (occurrence: FR)
  Receive Date: 20180105
  Receipt Date: 20180105
  Transmission Date: 20180509
  Serious: Yes (Hospitalization)
  Sender: FDA-Public Use
  Company Number: FR-AUROBINDO-AUR-APL-2018-000152

PATIENT
  Age: 81 Year
  Sex: Female
  Weight: 94 kg

DRUGS (11)
  1. ECONAZOLE [Suspect]
     Active Substance: ECONAZOLE
     Indication: FUNGAL INFECTION
     Dosage: NON COMMUNIQU?E
     Route: 061
     Dates: start: 20170926, end: 20171018
  2. MEROPENEM. [Suspect]
     Active Substance: MEROPENEM
     Indication: BACTERIAL INFECTION
     Dosage: 3 G, UNK
     Route: 042
     Dates: start: 20170925, end: 20171018
  3. TARGOCID [Suspect]
     Active Substance: TEICOPLANIN
     Indication: INFECTION
     Dosage: 800 MG, TWO TIMES A DAY
     Route: 042
     Dates: start: 20171009, end: 20171018
  4. COUMADINE [Suspect]
     Active Substance: WARFARIN SODIUM
     Indication: DEEP VEIN THROMBOSIS
     Dosage: NON COMMUNIQU?E ()
     Route: 049
     Dates: start: 20171014, end: 20171016
  5. COLCHICINE. [Suspect]
     Active Substance: COLCHICINE
     Indication: CHONDROCALCINOSIS
     Dosage: NON COMMUNIQUEE ()
     Route: 048
     Dates: start: 20171012, end: 20171016
  6. NEFOPAM [Suspect]
     Active Substance: NEFOPAM
     Indication: PROCEDURAL PAIN
     Dosage: NON COMMUNIQU?E ()
     Dates: start: 20170923, end: 20171017
  7. ZOPICLONE [Suspect]
     Active Substance: ZOPICLONE
     Indication: INSOMNIA
     Dosage: 7.5 ?G, UNK
     Route: 048
     Dates: end: 20171016
  8. METOCLOPRAMIDE. [Suspect]
     Active Substance: METOCLOPRAMIDE
     Indication: PROPHYLAXIS OF NAUSEA AND VOMITING
     Dosage: NON COMMUNIQU?E ()
     Dates: start: 20171002, end: 20171017
  9. PANTOPRAZOLE [Suspect]
     Active Substance: PANTOPRAZOLE
     Indication: PRODUCT USED FOR UNKNOWN INDICATION
     Dosage: 40 MG, UNK
     Route: 048
     Dates: start: 20171002, end: 20171018
  10. FLAMMAZINE [Suspect]
     Active Substance: SILVER SULFADIAZINE
     Indication: WOUND INFECTION FUNGAL
     Dosage: NON COMMUIQU?E ()
     Route: 061
     Dates: start: 20171004, end: 20171016
  11. LASILIX SPECIAL                    /00032601/ [Suspect]
     Active Substance: FUROSEMIDE
     Indication: CARDIAC FAILURE
     Dosage: 1/2 CP PAR JOUR PUIS 1 CP PAR JOUR PUIS 1/2 CP PAR JOUR ()
     Route: 048
     Dates: start: 20170926, end: 20171020

REACTIONS (1)
  - Rash maculo-papular [Recovered/Resolved]

NARRATIVE: CASE EVENT DATE: 20171016
